FAERS Safety Report 9003737 (Version 1)
Quarter: 2013Q1

REPORT INFORMATION
  Report Type: Spontaneous
  Country: US (occurrence: US)
  Receive Date: 20130108
  Receipt Date: 20130108
  Transmission Date: 20140127
  Serious: No
  Sender: FDA-Public Use
  Company Number: US-GLAXOSMITHKLINE-A0969737A

PATIENT
  Age: 51 Year
  Sex: Male

DRUGS (2)
  1. LOVAZA [Suspect]
     Indication: BLOOD TRIGLYCERIDES INCREASED
     Dosage: 3CAP PER DAY
     Route: 048
     Dates: start: 2011
  2. ETHANOL [Suspect]

REACTIONS (5)
  - Eructation [Not Recovered/Not Resolved]
  - Dizziness [Unknown]
  - Hyperhidrosis [Unknown]
  - Abdominal distension [Unknown]
  - Heart rate increased [Unknown]
